FAERS Safety Report 16119240 (Version 1)
Quarter: 2019Q1

REPORT INFORMATION
  Report Type: Spontaneous
  Country: US (occurrence: US)
  Receive Date: 20190326
  Receipt Date: 20190326
  Transmission Date: 20190418
  Serious: No
  Sender: FDA-Public Use
  Company Number: US-BAYER-2019-056731

PATIENT
  Age: 80 Year
  Sex: Female
  Weight: 68 kg

DRUGS (3)
  1. HYDROCHLOROTHIAZIDE. [Concomitant]
     Active Substance: HYDROCHLOROTHIAZIDE
     Dosage: UNK
  2. CLEARLAX [MACROGOL 3350] [Concomitant]
     Dosage: UNK
  3. MIRALAX [Suspect]
     Active Substance: POLYETHYLENE GLYCOL 3350
     Indication: GASTROINTESTINAL DISORDER
     Dosage: 1/2 CAP IN 4 OZ WATER DOSE
     Route: 048
     Dates: start: 20190311

REACTIONS (4)
  - Underdose [Unknown]
  - Product prescribing issue [Unknown]
  - Wrong technique in product usage process [Unknown]
  - Product use issue [Unknown]

NARRATIVE: CASE EVENT DATE: 20190311
